FAERS Safety Report 4890001-1 (Version None)
Quarter: 2006Q1

REPORT INFORMATION
  Report Type: 
  Country: None (occurrence: None)
  Receive Date: 20060123
  Receipt Date: 20060113
  Transmission Date: 20060701
  Serious: Yes (Other)
  Sender: FDA-Public Use
  Company Number: 2006007722

PATIENT
  Age: 58 Year
  Sex: Female
  Weight: 64.4108 kg

DRUGS (3)
  1. ROGAINE [Suspect]
     Indication: HYPOTRICHOSIS
     Dosage: 1 ML  TWICE A DAY, TOPICAL
     Route: 061
     Dates: start: 20030101, end: 20060101
  2. DIOVAN HCT [Concomitant]
  3. ESTROGENS SOL/INJ [Concomitant]

REACTIONS (2)
  - GOITRE [None]
  - PRURITUS [None]
